FAERS Safety Report 5209579-3 (Version None)
Quarter: 2007Q1

REPORT INFORMATION
  Report Type: 
  Country: None (occurrence: None)
  Receive Date: 20070111
  Receipt Date: 20070102
  Transmission Date: 20070707
  Serious: Yes (Other)
  Sender: FDA-Public Use
  Company Number: 234511

PATIENT
  Age: 13 Year
  Sex: Male
  Weight: 37.7 kg

DRUGS (2)
  1. SOMATROPIN SOLUTION FOR INJECTION, 10MG [Suspect]
     Indication: GROWTH RETARDATION
     Dosage: SEE IMAGE
     Route: 058
     Dates: start: 20060601
  2. RITALIN [Concomitant]

REACTIONS (1)
  - PITUITARY TUMOUR BENIGN [None]
